FAERS Safety Report 5787374-4 (Version None)
Quarter: 2008Q2

REPORT INFORMATION
  Report Type: 
  Country: None (occurrence: None)
  Receive Date: 20080625
  Receipt Date: 20080616
  Transmission Date: 20081010
  Serious: Yes (Hospitalization)
  Sender: FDA-Public Use
  Company Number: NL-ASTRAZENECA-2007AC02321

PATIENT
  Age: 17708 Day
  Sex: Female
  Weight: 66 kg

DRUGS (1)
  1. ANASTROZOLE [Suspect]
     Route: 048
     Dates: start: 20061201

REACTIONS (1)
  - OVARIAN DISORDER [None]
